FAERS Safety Report 11410480 (Version 1)
Quarter: 2015Q3

REPORT INFORMATION
  Report Type: Report from Study
  Country: US (occurrence: US)
  Receive Date: 20150824
  Receipt Date: 20150824
  Transmission Date: 20151125
  Serious: No
  Sender: FDA-Public Use
  Company Number: PHEH2015US002381

PATIENT
  Age: 33 Year
  Sex: Female

DRUGS (1)
  1. GILENYA [Suspect]
     Active Substance: FINGOLIMOD HYDROCHLORIDE
     Indication: MULTIPLE SCLEROSIS
     Dosage: 0.5 MG, QD
     Route: 048
     Dates: start: 20150130

REACTIONS (8)
  - Diarrhoea [Not Recovered/Not Resolved]
  - Faeces soft [Unknown]
  - Back pain [Unknown]
  - Fatigue [Unknown]
  - Energy increased [Unknown]
  - White blood cell count decreased [Unknown]
  - Abdominal discomfort [Not Recovered/Not Resolved]
  - Dizziness [Unknown]

NARRATIVE: CASE EVENT DATE: 20150130
